FAERS Safety Report 4443998-8 (Version None)
Quarter: 2004Q3

REPORT INFORMATION
  Report Type: 
  Country: None (occurrence: None)
  Receive Date: 20040729
  Receipt Date: 20020426
  Transmission Date: 20050211
  Serious: Yes (Death, Other)
  Sender: FDA-Public Use
  Company Number: USA-2002-0000869

PATIENT
  Age: 26 Year
  Sex: Male
  Weight: 98 kg

DRUGS (9)
  1. MORPHINE SULFATE [Suspect]
  2. DIHYDROCODEINE BITARTRATE, ACETAMINOPHEN AND CAFFEINE [Suspect]
  3. HYDROCODONE BITARTRATE [Suspect]
  4. ACETAMINOPHEN [Suspect]
  5. METHADONE HCL [Concomitant]
  6. COCAINE (COCAINE) [Suspect]
  7. METOCLOPRAMIDE [Suspect]
  8. IBUPROFEN [Suspect]
  9. CAFFEINE (CAFFEINE) [Suspect]

REACTIONS (3)
  - ACCIDENTAL OVERDOSE [None]
  - DRUG ABUSER [None]
  - MULTIPLE DRUG OVERDOSE [None]
